FAERS Safety Report 5932445-2 (Version None)
Quarter: 2008Q4

REPORT INFORMATION
  Report Type: 
  Country: None (occurrence: None)
  Receive Date: 20081028
  Receipt Date: 20081016
  Transmission Date: 20090506
  Serious: Yes (Other)
  Sender: FDA-Public Use
  Company Number: GB-ROCHE-591975

PATIENT
  Age: 49 Year
  Sex: Male

DRUGS (4)
  1. MYCOPHENOLATE MOFETIL [Suspect]
     Indication: CONJUNCTIVITIS
     Route: 065
     Dates: start: 20040401
  2. MYCOPHENOLATE MOFETIL [Suspect]
     Dosage: DOSE INCREASED
     Route: 065
  3. DAPSONE [Suspect]
     Indication: CONJUNCTIVITIS
     Route: 065
     Dates: start: 20030901
  4. DAPSONE [Suspect]
     Dosage: DOSE INCREASED
     Route: 065

REACTIONS (7)
  - BACTERIAL CULTURE POSITIVE [None]
  - CATARACT OPERATION [None]
  - CORNEAL PERFORATION [None]
  - EYE INFECTION STAPHYLOCOCCAL [None]
  - KERATITIS BACTERIAL [None]
  - POSTERIOR CAPSULOTOMY [None]
  - STAPHYLOCOCCAL INFECTION [None]
